FAERS Safety Report 24926261 (Version 2)
Quarter: 2025Q1

REPORT INFORMATION
  Report Type: Spontaneous
  Country: JP (occurrence: JP)
  Receive Date: 20250205
  Receipt Date: 20250213
  Transmission Date: 20250409
  Serious: Yes (Death, Other)
  Sender: TAKEDA
  Company Number: JP-TAKEDA-2025TJP001353

PATIENT
  Age: 65 Year
  Sex: Male

DRUGS (1)
  1. NINLARO [Suspect]
     Active Substance: IXAZOMIB CITRATE
     Indication: Plasma cell myeloma
     Dosage: UNK UNK, 1/WEEK

REACTIONS (3)
  - Sepsis [Fatal]
  - Blood immunoglobulin G increased [Unknown]
  - Diarrhoea [Unknown]
